FAERS Safety Report 4698679-2 (Version None)
Quarter: 2005Q2

REPORT INFORMATION
  Report Type: 
  Country: None (occurrence: None)
  Receive Date: 20050622
  Receipt Date: 20050617
  Transmission Date: 20051028
  Serious: Yes (Other)
  Sender: FDA-Public Use
  Company Number: 200512189BCC

PATIENT
  Age: 75 Year
  Sex: Female
  Weight: 68.0396 kg

DRUGS (5)
  1. ORIGINAL BAYER ASPIRIN (ACETYSALICYLIC ACID) [Suspect]
     Indication: MYOCARDIAL INFARCTION
     Dosage: 325 MG, QD; ORAL
     Route: 048
     Dates: start: 20040101
  2. ORIGINAL BAYER ASPIRIN (ACETYSALICYLIC ACID) [Suspect]
     Indication: PROPHYLAXIS
     Dosage: 325 MG, QD; ORAL
     Route: 048
     Dates: start: 20040101
  3. PLAVIX [Concomitant]
  4. CHLOESTEROL MEDICATION [Concomitant]
  5. DIABETES MEDICATION [Concomitant]

REACTIONS (3)
  - DIZZINESS [None]
  - MYOCARDIAL INFARCTION [None]
  - STOMACH DISCOMFORT [None]
